FAERS Safety Report 7866860-7 (Version None)
Quarter: 2011Q4

REPORT INFORMATION
  Report Type: 
  Country: None (occurrence: None)
  Receive Date: 20111026
  Receipt Date: 20111020
  Transmission Date: 20120403
  Serious: Yes (Other)
  Sender: FDA-Public Use
  Company Number: AUR-APL-2011-03547

PATIENT
  Age: 44 Year
  Sex: Male
  Weight: 74.4 kg

DRUGS (6)
  1. SERTRALINE HYDROCHLORIDE [Concomitant]
  2. CLOZARIL [Suspect]
     Indication: SCHIZOPHRENIA
     Dosage: (375 MG), ORAL
     Route: 048
     Dates: start: 20100809
  3. HYOSCINE HBR HYT [Suspect]
     Indication: IRRITABLE BOWEL SYNDROME
     Dosage: (10 MG), ORAL
     Route: 048
  4. RISPERIDONE [Suspect]
     Indication: PRODUCT USED FOR UNKNOWN INDICATION
  5. HYOSCINE HYDROBROMIDE (HYOSCINE HYDROBROMIDE) [Concomitant]
  6. FERROUS SULFATE TAB [Concomitant]

REACTIONS (15)
  - MICROCYTIC ANAEMIA [None]
  - WEIGHT DECREASED [None]
  - VOMITING [None]
  - WHITE BLOOD CELL COUNT DECREASED [None]
  - SEASONAL ALLERGY [None]
  - SALIVARY HYPERSECRETION [None]
  - IDEAS OF REFERENCE [None]
  - NEUTROPENIA [None]
  - SERUM FERRITIN INCREASED [None]
  - DIZZINESS [None]
  - HALLUCINATION, AUDITORY [None]
  - RED BLOOD CELL ELLIPTOCYTES PRESENT [None]
  - PLATELET COUNT DECREASED [None]
  - PERSECUTORY DELUSION [None]
  - MEAN CELL VOLUME DECREASED [None]
